FAERS Safety Report 14280456 (Version 1)
Quarter: 2017Q4

REPORT INFORMATION
  Report Type: Spontaneous
  Country: BR (occurrence: BR)
  Receive Date: 20171213
  Receipt Date: 20171213
  Transmission Date: 20180321
  Serious: Yes (Other)
  Sender: FDA-Public Use
  Company Number: PHHY2017BR182205

PATIENT
  Age: 75 Year
  Sex: Female
  Weight: 82 kg

DRUGS (2)
  1. ZOMETA [Suspect]
     Active Substance: ZOLEDRONIC ACID
     Indication: PRODUCT USED FOR UNKNOWN INDICATION
     Route: 065
  2. CLOXAZOLAM [Suspect]
     Active Substance: CLOXAZOLAM
     Indication: DEPRESSION
     Dosage: 2 MG, QD
     Route: 048

REACTIONS (2)
  - Weight increased [Unknown]
  - Bone cancer [Recovering/Resolving]

NARRATIVE: CASE EVENT DATE: 201611
